FAERS Safety Report 5152544-5 (Version None)
Quarter: 2007Q1

REPORT INFORMATION
  Report Type: 
  Country: None (occurrence: None)
  Receive Date: 20061109
  Receipt Date: 20061030
  Transmission Date: 20070707
  Serious: Yes (Hospitalization)
  Sender: FDA-Public Use
  Company Number: GXKR2006GB06831

PATIENT
  Age: 71 Year
  Sex: Male

DRUGS (5)
  1. ACETAMINOPHEN W/ CODEINE [Suspect]
     Indication: TENDONITIS
     Dosage: 500 MG, 8QD, ORAL
     Route: 048
     Dates: start: 20060831, end: 20060904
  2. BECLOMETHASONE DIPROPIONATE [Concomitant]
  3. FORMOTEROL FUMARATE [Concomitant]
  4. SALBUTAMOL [Concomitant]
  5. SIMVASTATIN [Concomitant]

REACTIONS (1)
  - VASCULITIS [None]
